FAERS Safety Report 7202617-8 (Version None)
Quarter: 2010Q4

REPORT INFORMATION
  Report Type: 
  Country: None (occurrence: None)
  Receive Date: 20101229
  Receipt Date: 20101224
  Transmission Date: 20110411
  Serious: Yes (Hospitalization)
  Sender: FDA-Public Use
  Company Number: US-JNJFOC-20101208434

PATIENT
  Age: 56 Year
  Sex: Male

DRUGS (7)
  1. DARUNAVIR [Suspect]
     Indication: HIV INFECTION
     Route: 065
  2. RITONAVIR [Suspect]
     Indication: HIV INFECTION
     Route: 065
  3. TRUVADA [Suspect]
     Indication: HIV INFECTION
     Route: 065
  4. ATAZANAVIR [Suspect]
     Indication: HIV INFECTION
     Route: 065
  5. RALTEGRAVIR [Suspect]
     Indication: HIV INFECTION
     Route: 065
  6. VALTREX [Concomitant]
     Indication: GENITAL HERPES
  7. CELEXA [Concomitant]
     Indication: DEPRESSION

REACTIONS (1)
  - RENAL FAILURE ACUTE [None]
